FAERS Safety Report 6987273-6 (Version None)
Quarter: 2010Q3

REPORT INFORMATION
  Report Type: 
  Country: None (occurrence: None)
  Receive Date: 20100916
  Receipt Date: 20100903
  Transmission Date: 20110219
  Serious: Yes (Death)
  Sender: FDA-Public Use
  Company Number: US-TYCO HEALTHCARE/MALLINCKRODT-T201001921

PATIENT
  Age: 56 Year
  Sex: Female

DRUGS (2)
  1. PHOSPHOCOL P32 [Suspect]
     Indication: OVARIAN CANCER
     Dosage: 15 MCI, SINGLE
     Route: 033
  2. NORMAL SALINE [Suspect]
     Dosage: 250 ML, SINGLE
     Route: 033

REACTIONS (1)
  - DEATH [None]
